FAERS Safety Report 15058321 (Version 3)
Quarter: 2018Q3

REPORT INFORMATION
  Report Type: Spontaneous
  Country: AT (occurrence: AT)
  Receive Date: 20180625
  Receipt Date: 20180816
  Transmission Date: 20181010
  Serious: Yes (Other)
  Sender: FDA-Public Use
  Company Number: AT-TEVA-2018-AT-913673

PATIENT
  Sex: Female

DRUGS (4)
  1. LAMOTRIGINE. [Suspect]
     Active Substance: LAMOTRIGINE
     Indication: DEPRESSION
     Dosage: 100?0?200 MG/DAY
     Route: 065
  2. LITHIUM CARBONATE. [Suspect]
     Active Substance: LITHIUM CARBONATE
     Dosage: A SINGLE DOSE AT NIGHT (DOSE 25% REDUCED)
     Route: 065
     Dates: start: 201407
  3. LITHIUM CARBONATE. [Suspect]
     Active Substance: LITHIUM CARBONATE
     Dosage: ONE TABLET AT NIGHT (DOSE 50% REDUCED)
     Route: 065
     Dates: start: 201502
  4. LITHIUM CARBONATE. [Suspect]
     Active Substance: LITHIUM CARBONATE
     Indication: BIPOLAR I DISORDER
     Dosage: TWO PROLONGED?RELEASE LITHIUM TABLETS IN TWO DIVIDED DOSES
     Route: 065
     Dates: start: 201210, end: 201406

REACTIONS (1)
  - Renal impairment [Recovering/Resolving]
